FAERS Safety Report 4715849-5 (Version None)
Quarter: 2005Q3

REPORT INFORMATION
  Report Type: 
  Country: None (occurrence: None)
  Receive Date: 20050718
  Receipt Date: 20050712
  Transmission Date: 20060218
  Serious: Yes (Life-Threatening)
  Sender: FDA-Public Use
  Company Number: EG-BRACCO-BRO-008901

PATIENT
  Age: 75 Year
  Sex: Male
  Weight: 100 kg

DRUGS (2)
  1. MULTIHANCE [Suspect]
     Indication: NUCLEAR MAGNETIC RESONANCE IMAGING BRAIN
     Route: 042
     Dates: start: 20050613, end: 20050613
  2. MIDAZOLAM HCL [Concomitant]
     Route: 042
     Dates: start: 20050613, end: 20050613

REACTIONS (4)
  - APNOEA [None]
  - BRADYCARDIA [None]
  - CARDIAC ARREST [None]
  - RESPIRATORY DEPRESSION [None]
